FAERS Safety Report 11009802 (Version 1)
Quarter: 2015Q2

REPORT INFORMATION
  Report Type: Spontaneous
  Country: US (occurrence: None)
  Receive Date: 20150409
  Receipt Date: 20150409
  Transmission Date: 20150821
  Serious: Yes (Hospitalization, Disabling)
  Sender: FDA-Public Use
  Company Number: None

PATIENT
  Age: 31 Year
  Sex: Female
  Weight: 55.79 kg

DRUGS (4)
  1. VITAMIN D [Concomitant]
     Active Substance: CHOLECALCIFEROL
  2. FISH OIL [Concomitant]
     Active Substance: FISH OIL
  3. ZENATANE [Suspect]
     Active Substance: ISOTRETINOIN
     Indication: ACNE
     Route: 048
     Dates: start: 20150213, end: 20150224
  4. KLONOPIN [Concomitant]
     Active Substance: CLONAZEPAM

REACTIONS (10)
  - Hypotension [None]
  - Weight decreased [None]
  - Activities of daily living impaired [None]
  - Paraesthesia [None]
  - Chest discomfort [None]
  - Heart rate increased [None]
  - Depression [None]
  - No therapeutic response [None]
  - Feeling abnormal [None]
  - Anxiety [None]

NARRATIVE: CASE EVENT DATE: 20150224
